FAERS Safety Report 16977001 (Version 1)
Quarter: 2019Q4

REPORT INFORMATION
  Report Type: Report from Study
  Country: None (occurrence: BE)
  Receive Date: 20191030
  Receipt Date: 20191030
  Transmission Date: 20200122
  Serious: Yes (Other)
  Sender: FDA-Public Use
  Company Number: BE-ABBVIE-19K-013-2970028-00

PATIENT
  Sex: Male

DRUGS (4)
  1. DUODOPA [Suspect]
     Active Substance: CARBIDOPA\LEVODOPA
     Dosage: MD=0ML, CD=2.2ML/HR DURING 16HRS, ED=1.5ML
     Route: 050
     Dates: start: 20190828
  2. DUODOPA [Suspect]
     Active Substance: CARBIDOPA\LEVODOPA
     Indication: PARKINSON^S DISEASE
     Route: 050
     Dates: start: 20080303, end: 20080304
  3. DUODOPA [Suspect]
     Active Substance: CARBIDOPA\LEVODOPA
     Dosage: MD=17ML, CD=5.5ML/HR DURING 16HRS, ED=6ML
     Route: 050
     Dates: start: 20080304, end: 20120417
  4. DUODOPA [Suspect]
     Active Substance: CARBIDOPA\LEVODOPA
     Dosage: DOSES CONTINUOUSLY MONITORED AND ADAPTED
     Route: 050
     Dates: start: 20120417, end: 20180828

REACTIONS (2)
  - Embedded device [Recovered/Resolved]
  - Stoma site infection [Unknown]

NARRATIVE: CASE EVENT DATE: 20191024
